FAERS Safety Report 8440197-X (Version None)
Quarter: 2012Q2

REPORT INFORMATION
  Report Type: 
  Country: None (occurrence: None)
  Receive Date: 20120615
  Receipt Date: 20120613
  Transmission Date: 20120825
  Serious: Yes (Hospitalization, Other)
  Sender: FDA-Public Use
  Company Number: ES-ROCHE-1066988

PATIENT
  Sex: Female
  Weight: 69 kg

DRUGS (15)
  1. INSULIN [Concomitant]
     Dosage: REPORTED AS INSULIN PROCONG
  2. GEMFIBROZIL [Concomitant]
  3. HERCEPTIN [Suspect]
     Dosage: MAINTANANCE DOSE
  4. ENALAPRIL MALEATE [Concomitant]
  5. ATORVASTAN [Concomitant]
  6. BROMAZEPAM [Concomitant]
  7. BLINDED PERTUZUMAB [Suspect]
     Indication: BREAST CANCER
     Dosage: LOADING DOSE
     Route: 042
     Dates: start: 20120430
  8. BLINDED PERTUZUMAB [Suspect]
     Dosage: MAINTANANCE DOSE
  9. METFORMIN HCL [Concomitant]
  10. HERCEPTIN [Suspect]
     Indication: BREAST CANCER
     Dosage: LOADING DOSE
     Route: 042
     Dates: start: 20120430
  11. DOCETAXEL [Suspect]
     Indication: BREAST CANCER
     Route: 042
     Dates: start: 20120430
  12. OMEPRAZOLE [Concomitant]
  13. GLICLAZIDE [Concomitant]
  14. ACETAMINOPHEN [Concomitant]
  15. VENLAFAXINE HCL [Concomitant]

REACTIONS (2)
  - MUCOSAL INFLAMMATION [None]
  - FEBRILE NEUTROPENIA [None]
